FAERS Safety Report 4744896-2 (Version None)
Quarter: 2005Q3

REPORT INFORMATION
  Report Type: 
  Country: None (occurrence: None)
  Receive Date: 20050811
  Receipt Date: 20050728
  Transmission Date: 20060218
  Serious: Yes (Hospitalization)
  Sender: FDA-Public Use
  Company Number: 2005BI011018

PATIENT
  Age: 55 Year
  Sex: Female

DRUGS (3)
  1. AVONEX [Suspect]
     Indication: MULTIPLE SCLEROSIS
     Dosage: 30 UG;QW;IM
     Route: 030
     Dates: start: 20031229
  2. AVONEX [Suspect]
  3. AVONEX [Suspect]

REACTIONS (4)
  - ASTHENIA [None]
  - FALL [None]
  - PNEUMOTHORAX [None]
  - RIB FRACTURE [None]
